FAERS Safety Report 10674001 (Version 1)
Quarter: 2014Q4

REPORT INFORMATION
  Report Type: Spontaneous
  Country: US (occurrence: None)
  Receive Date: 20141223
  Receipt Date: 20141223
  Transmission Date: 20150529
  Serious: Yes (Other)
  Sender: FDA-Public Use
  Company Number: None

PATIENT
  Age: 58 Year
  Sex: Female
  Weight: 72.58 kg

DRUGS (10)
  1. TRAMADOL [Concomitant]
     Active Substance: TRAMADOL
  2. CRANBERRY PILLS [Concomitant]
  3. CIPROFLOXACIN. [Suspect]
     Active Substance: CIPROFLOXACIN
     Indication: URINARY TRACT INFECTION
     Route: 048
     Dates: start: 20140920, end: 20141129
  4. MAGNESIUM [Concomitant]
     Active Substance: MAGNESIUM
  5. FLEXERIL [Concomitant]
     Active Substance: CYCLOBENZAPRINE HYDROCHLORIDE
  6. MACROBID [Concomitant]
     Active Substance: NITROFURANTOIN\NITROFURANTOIN MONOHYDRATE
  7. VITAMINS [Concomitant]
     Active Substance: VITAMINS
  8. CELEXA [Concomitant]
     Active Substance: CITALOPRAM HYDROBROMIDE
  9. CIPROFLOXACIN. [Suspect]
     Active Substance: CIPROFLOXACIN
     Indication: CYSTITIS
     Route: 048
     Dates: start: 20140920, end: 20141129
  10. TYLENOL/COD #3 [Concomitant]

REACTIONS (8)
  - Headache [None]
  - Feeling cold [None]
  - Feeling abnormal [None]
  - Arthralgia [None]
  - Chest discomfort [None]
  - Gait disturbance [None]
  - Dyspnoea [None]
  - Musculoskeletal pain [None]

NARRATIVE: CASE EVENT DATE: 20141126
